FAERS Safety Report 8337927-4 (Version None)
Quarter: 2012Q2

REPORT INFORMATION
  Report Type: 
  Country: None (occurrence: None)
  Receive Date: 20120504
  Receipt Date: 20120427
  Transmission Date: 20120825
  Serious: Yes (Other)
  Sender: FDA-Public Use
  Company Number: JP-JNJFOC-20120502984

PATIENT
  Age: 85 Year
  Sex: Female
  Weight: 48 kg

DRUGS (1)
  1. LISTERINE SOFT MINT [Suspect]
     Indication: PRODUCT USED FOR UNKNOWN INDICATION
     Route: 048
     Dates: start: 20120427

REACTIONS (4)
  - SUICIDE ATTEMPT [None]
  - INCORRECT ROUTE OF DRUG ADMINISTRATION [None]
  - INTENTIONAL DRUG MISUSE [None]
  - VOMITING [None]
